FAERS Safety Report 17110383 (Version 1)
Quarter: 2019Q4

REPORT INFORMATION
  Report Type: Spontaneous
  Country: US (occurrence: US)
  Receive Date: 20191108
  Receipt Date: 20191108
  Transmission Date: 20200122
  Serious: Yes (Hospitalization)
  Sender: FDA-Public Use
  Company Number: None

PATIENT
  Age: 89 Year
  Sex: Female
  Weight: 64.86 kg

DRUGS (10)
  1. VITAMIN B12 [Concomitant]
     Active Substance: CYANOCOBALAMIN
  2. FISH OIL [Concomitant]
     Active Substance: FISH OIL
  3. COQ10 [Concomitant]
     Active Substance: UBIDECARENONE
  4. VITAMIN D3 [Concomitant]
     Active Substance: CHOLECALCIFEROL
  5. PRERVISOIN [Concomitant]
  6. METOPROLOL. [Suspect]
     Active Substance: METOPROLOL
  7. MAGNISUM [Concomitant]
  8. ELIQUIS [Suspect]
     Active Substance: APIXABAN
     Indication: HEART RATE INCREASED
     Dosage: ?          QUANTITY:1 DF DOSAGE FORM;?
     Route: 048
     Dates: start: 201908
  9. XARELTO [Suspect]
     Active Substance: RIVAROXABAN
  10. CARVEDILOL. [Suspect]
     Active Substance: CARVEDILOL

REACTIONS (12)
  - Atrial fibrillation [None]
  - Dyspepsia [None]
  - Chest discomfort [None]
  - Vision blurred [None]
  - Dysphonia [None]
  - Pruritus [None]
  - Musculoskeletal discomfort [None]
  - Memory impairment [None]
  - Asthenia [None]
  - Impaired driving ability [None]
  - Feeling abnormal [None]
  - Anxiety [None]
